FAERS Safety Report 24743621 (Version 4)
Quarter: 2025Q3

REPORT INFORMATION
  Report Type: Report from Study
  Country: CA (occurrence: CA)
  Receive Date: 20241217
  Receipt Date: 20250803
  Transmission Date: 20251021
  Serious: Yes (Hospitalization)
  Sender: ALEXION PHARMACEUTICALS
  Company Number: CA-AstraZeneca-CH-00765303A

PATIENT
  Sex: Female

DRUGS (2)
  1. OLAPARIB [Suspect]
     Active Substance: OLAPARIB
     Indication: Breast cancer
     Dosage: 300 MILLIGRAM, BID
     Dates: start: 20240621
  2. OLAPARIB [Suspect]
     Active Substance: OLAPARIB
     Dosage: 150 MILLIGRAM, BID
     Dates: start: 20241217

REACTIONS (9)
  - Infection [Unknown]
  - Illness [Unknown]
  - Underdose [Unknown]
  - Blood test abnormal [Unknown]
  - Diarrhoea [Unknown]
  - Hypersomnia [Unknown]
  - Fatigue [Unknown]
  - Malaise [Unknown]
  - Quality of life decreased [Unknown]
